FAERS Safety Report 5429851-1 (Version None)
Quarter: 2007Q3

REPORT INFORMATION
  Report Type: 
  Country: None (occurrence: None)
  Receive Date: 20070829
  Receipt Date: 20070824
  Transmission Date: 20080115
  Serious: Yes (Other)
  Sender: FDA-Public Use
  Company Number: JP-PFIZER INC-2007062380

PATIENT
  Age: 26 Year
  Sex: Male

DRUGS (4)
  1. ZOLOFT [Suspect]
     Indication: DECREASED APPETITE
     Route: 048
     Dates: start: 20070628, end: 20070713
  2. ZOLOFT [Suspect]
     Indication: DEPRESSED MOOD
  3. DEPAS [Concomitant]
     Indication: ANXIETY
     Route: 048
  4. HERBAL PREPARATION [Concomitant]
     Indication: DIZZINESS
     Route: 048
     Dates: start: 20070525

REACTIONS (1)
  - CONVULSION [None]
